FAERS Safety Report 6981816-4 (Version None)
Quarter: 2010Q3

REPORT INFORMATION
  Report Type: 
  Country: None (occurrence: None)
  Receive Date: 20100914
  Receipt Date: 20091125
  Transmission Date: 20110219
  Serious: No
  Sender: FDA-Public Use
  Company Number: US-PFIZER INC-2009253099

PATIENT
  Sex: Female
  Weight: 67 kg

DRUGS (8)
  1. LYRICA [Suspect]
     Indication: FIBROMYALGIA
     Dosage: 150 MG, 2X/DAY
     Route: 048
     Dates: start: 20080101
  2. SYNTHROID [Concomitant]
     Indication: HYPOTHYROIDISM
     Dosage: UNK
  3. AMITRIPTYLINE [Concomitant]
     Indication: SLEEP DISORDER
     Dosage: UNK
  4. MACRODANTIN [Concomitant]
     Indication: PROPHYLAXIS
     Dosage: UNK
  5. CITALOPRAM [Concomitant]
     Dosage: UNK
  6. MACROBID [Concomitant]
  7. ELAVIL [Concomitant]
  8. CELEXA [Concomitant]

REACTIONS (5)
  - BLOOD CHOLESTEROL INCREASED [None]
  - BLOOD TRIGLYCERIDES INCREASED [None]
  - DYSPEPSIA [None]
  - GASTRITIS [None]
  - WEIGHT INCREASED [None]
